FAERS Safety Report 5352341-1 (Version None)
Quarter: 2007Q2

REPORT INFORMATION
  Report Type: 
  Country: None (occurrence: None)
  Receive Date: 20070606
  Receipt Date: 20070525
  Transmission Date: 20071010
  Serious: Yes (Other)
  Sender: FDA-Public Use
  Company Number: PHBS2007BR08834

PATIENT
  Age: 53 Year
  Sex: Female
  Weight: 79 kg

DRUGS (5)
  1. LAMISIL [Suspect]
     Indication: FUNGAL INFECTION
     Dosage: UNK, TID, TOPICAL
     Route: 061
  2. FLUCON (FLUOROMETHOLONE) [Concomitant]
  3. MEAVERIN (EPINEPHRINE BITARTRATE, MEPIVACAINE HYDROCHLORIDE [Concomitant]
  4. AZATHIOPRINE [Concomitant]
  5. TYLENOL [Concomitant]

REACTIONS (1)
  - THROMBOSIS [None]
